FAERS Safety Report 9472497 (Version 1)
Quarter: 2013Q3

REPORT INFORMATION
  Report Type: Other
  Country: CN (occurrence: CN)
  Receive Date: 20130823
  Receipt Date: 20130823
  Transmission Date: 20140515
  Serious: Yes (Hospitalization)
  Sender: FDA-Public Use
  Company Number: CN-US-EMD SERONO, INC.-7232011

PATIENT
  Age: 26 Year
  Sex: Female

DRUGS (2)
  1. OVIDREL [Suspect]
     Indication: INFERTILITY
     Dates: end: 20111112
  2. GONAL-F [Suspect]
     Indication: INFERTILITY

REACTIONS (5)
  - Renal failure acute [Recovered/Resolved]
  - Haemorrhagic ovarian cyst [Recovered/Resolved]
  - Ovarian hyperstimulation syndrome [Recovered/Resolved]
  - Normal newborn [Recovered/Resolved]
  - Twin pregnancy [Recovered/Resolved]
